FAERS Safety Report 11628386 (Version 8)
Quarter: 2016Q2

REPORT INFORMATION
  Report Type: Report from Study
  Country: JP (occurrence: JP)
  Receive Date: 20151014
  Receipt Date: 20160411
  Transmission Date: 20160815
  Serious: Yes (Death, Hospitalization, Other)
  Sender: FDA-Public Use
  Company Number: PHHY2014JP144338

PATIENT
  Age: 68 Year
  Sex: Female
  Weight: 43 kg

DRUGS (13)
  1. JAKAFI [Suspect]
     Active Substance: RUXOLITINIB
     Dosage: 5 MG, QD
     Route: 048
     Dates: start: 20151005, end: 20151009
  2. ALKERAN [Suspect]
     Active Substance: MELPHALAN
     Indication: MYELOFIBROSIS
     Dosage: 6 MG, UNK
     Route: 048
     Dates: start: 20150106, end: 20151204
  3. RED BLOOD CELLS [Concomitant]
     Active Substance: HUMAN RED BLOOD CELL
     Indication: MYELOFIBROSIS
     Dosage: 2 IU, UNK
     Route: 065
     Dates: start: 20141222, end: 20150327
  4. RED BLOOD CELLS [Concomitant]
     Active Substance: HUMAN RED BLOOD CELL
     Dosage: 2 IU, UNK
     Route: 065
     Dates: start: 20150513
  5. JAKAFI [Suspect]
     Active Substance: RUXOLITINIB
     Dosage: 5 MG, QD
     Route: 048
     Dates: start: 20151023
  6. PREDNISOLONE. [Suspect]
     Active Substance: PREDNISOLONE
     Indication: MYELOFIBROSIS
     Dosage: 10 MG, UNK
     Route: 048
     Dates: start: 20150108, end: 20150223
  7. JAKAFI [Suspect]
     Active Substance: RUXOLITINIB
     Dosage: 10 MG, TID
     Route: 048
     Dates: start: 20141201, end: 20141215
  8. PREDNISOLONE. [Suspect]
     Active Substance: PREDNISOLONE
     Dosage: 5 MG, QD
     Route: 048
     Dates: start: 20150224, end: 20150302
  9. JAKAFI [Suspect]
     Active Substance: RUXOLITINIB
     Dosage: 5 MG, QD
     Route: 048
     Dates: start: 20150310, end: 20150826
  10. JAKAFI [Suspect]
     Active Substance: RUXOLITINIB
     Indication: PRIMARY MYELOFIBROSIS
     Dosage: 10 MG, BID
     Route: 048
     Dates: start: 20141022, end: 20141130
  11. JAKAFI [Suspect]
     Active Substance: RUXOLITINIB
     Dosage: 10 MG, QD
     Route: 048
     Dates: start: 20150219, end: 20150227
  12. JAKAFI [Suspect]
     Active Substance: RUXOLITINIB
     Dosage: 10 MG, BID
     Route: 048
     Dates: start: 20141222, end: 20141225
  13. LENADEX [Suspect]
     Active Substance: DEXAMETHASONE ACETATE
     Indication: MYELOFIBROSIS
     Dosage: 20 MG, UNK
     Route: 048
     Dates: start: 20150106, end: 20151204

REACTIONS (27)
  - Cardiomegaly [Unknown]
  - Platelet count decreased [Recovered/Resolved]
  - Cardiac failure [Not Recovered/Not Resolved]
  - Alanine aminotransferase increased [Recovered/Resolved]
  - Device related infection [Unknown]
  - Blood pressure systolic increased [Unknown]
  - Aspartate aminotransferase increased [Recovered/Resolved]
  - Renal impairment [Not Recovered/Not Resolved]
  - Tooth fracture [Recovered/Resolved]
  - Gingival bleeding [Recovered/Resolved]
  - Pyrexia [Recovered/Resolved]
  - Anaemia [Not Recovered/Not Resolved]
  - Malaise [Recovered/Resolved]
  - Hypogammaglobulinaemia [Not Recovered/Not Resolved]
  - Primary hypothyroidism [Recovering/Resolving]
  - Primary myelofibrosis [Fatal]
  - Lung infiltration [Recovering/Resolving]
  - White blood cell count increased [Recovering/Resolving]
  - Hypoaesthesia [Recovering/Resolving]
  - Oedema [Recovering/Resolving]
  - Pulmonary congestion [Unknown]
  - Pneumonia [Recovered/Resolved]
  - Influenza [Recovered/Resolved]
  - Diarrhoea [Recovered/Resolved]
  - Malaise [Unknown]
  - Pleural effusion [Recovering/Resolving]
  - Inflammation [Recovering/Resolving]

NARRATIVE: CASE EVENT DATE: 20141215
